FAERS Safety Report 24071891 (Version 1)
Quarter: 2024Q3

REPORT INFORMATION
  Report Type: Report from Study
  Country: GB (occurrence: GB)
  Receive Date: 20240710
  Receipt Date: 20240710
  Transmission Date: 20241016
  Serious: No
  Sender: ROCHE
  Company Number: GB-ROCHE-3074290

PATIENT
  Sex: Female

DRUGS (2)
  1. RISDIPLAM [Suspect]
     Active Substance: RISDIPLAM
     Indication: Spinal muscular atrophy
     Dosage: STRENGTH: 0.75 MG/ML ?DOSE: 5 MG (6.6 ML)
     Route: 065
     Dates: start: 20210630
  2. RISDIPLAM [Suspect]
     Active Substance: RISDIPLAM
     Dosage: 0.75 MG
     Route: 065
     Dates: start: 202105

REACTIONS (4)
  - Product dispensing error [Unknown]
  - No adverse event [Unknown]
  - Wrong technique in product usage process [Unknown]
  - Product container issue [Unknown]
